FAERS Safety Report 5708867-1 (Version None)
Quarter: 2008Q2

REPORT INFORMATION
  Report Type: 
  Country: None (occurrence: None)
  Receive Date: 20080416
  Receipt Date: 20080404
  Transmission Date: 20081010
  Serious: Yes (Hospitalization)
  Sender: FDA-Public Use
  Company Number: 2008US001004

PATIENT
  Age: 25 Year
  Sex: Male

DRUGS (5)
  1. PROGRAF [Suspect]
     Indication: LUNG TRANSPLANT
  2. CORTICOSTEROIDS [Concomitant]
  3. SIMULECT [Concomitant]
  4. MYCOPHENOLATE MOFETIL [Concomitant]
  5. CYCLOSPORINE [Concomitant]

REACTIONS (4)
  - ABDOMINAL WOUND DEHISCENCE [None]
  - DISTAL INTESTINAL OBSTRUCTION SYNDROME [None]
  - REVERSIBLE POSTERIOR LEUKOENCEPHALOPATHY SYNDROME [None]
  - WOUND INFECTION [None]
